FAERS Safety Report 8341500-1 (Version None)
Quarter: 2012Q2

REPORT INFORMATION
  Report Type: 
  Country: None (occurrence: None)
  Receive Date: 20120507
  Receipt Date: 20120503
  Transmission Date: 20120825
  Serious: Yes (Life-Threatening, Hospitalization)
  Sender: FDA-Public Use
  Company Number: CHPA2012GB009794

PATIENT
  Age: 78 Year
  Sex: Male
  Weight: 78 kg

DRUGS (3)
  1. ROCURONIUM BROMIDE [Suspect]
     Dosage: 40 MG, UNK
     Route: 042
     Dates: start: 20120423, end: 20120423
  2. CEFUROXIME [Suspect]
     Dosage: UNK, UNK
     Route: 042
     Dates: start: 20120413, end: 20120413
  3. CHLORHEXIDINE GLUCONATE [Suspect]
     Dosage: UNK, UNK
     Route: 061
     Dates: start: 20120413, end: 20120413

REACTIONS (4)
  - FLUSHING [None]
  - OXYGEN SATURATION DECREASED [None]
  - HYPERSENSITIVITY [None]
  - HYPOTENSION [None]
